FAERS Safety Report 5352413-1 (Version None)
Quarter: 2007Q2

REPORT INFORMATION
  Report Type: 
  Country: None (occurrence: None)
  Receive Date: 20070607
  Receipt Date: 20070607
  Transmission Date: 20071010
  Serious: Yes (Other)
  Sender: FDA-Public Use
  Company Number: None

PATIENT
  Age: 52 Year
  Sex: Female
  Weight: 85.2762 kg

DRUGS (1)
  1. AVANDIA [Suspect]
     Indication: BLOOD GLUCOSE INCREASED
     Dosage: ONE DAILY
     Dates: start: 20040322, end: 20070515

REACTIONS (3)
  - CHEST PAIN [None]
  - HYPERTENSION [None]
  - MACULAR DEGENERATION [None]
